FAERS Safety Report 4696495-9 (Version None)
Quarter: 2005Q2

REPORT INFORMATION
  Report Type: 
  Country: None (occurrence: None)
  Receive Date: 20050620
  Receipt Date: 20050606
  Transmission Date: 20051028
  Serious: Yes (Hospitalization, Disabling, Other)
  Sender: FDA-Public Use
  Company Number: 2005085170

PATIENT
  Age: 76 Year
  Sex: Female

DRUGS (16)
  1. DETROL [Suspect]
     Indication: ILL-DEFINED DISORDER
     Dosage: SEE IMAGE
  2. SEREVENT [Suspect]
     Indication: CHRONIC OBSTRUCTIVE PULMONARY DISEASE
     Dosage: INHALATION
     Route: 055
     Dates: end: 20050101
  3. SEREVENT [Suspect]
     Indication: EMPHYSEMA
     Dosage: INHALATION
     Route: 055
     Dates: end: 20050101
  4. ALBUTEROL [Suspect]
     Indication: BRONCHITIS ACUTE
     Dates: end: 20050101
  5. ALBUTEROL [Suspect]
     Indication: CHRONIC OBSTRUCTIVE PULMONARY DISEASE
     Dates: end: 20050101
  6. ALBUTEROL [Suspect]
     Indication: EMPHYSEMA
     Dates: end: 20050101
  7. ADVAIR (FLUTICASONE PROPIONATE, SALMETEROL XINAFOATE) [Suspect]
     Indication: BRONCHITIS ACUTE
     Dosage: INHALATION
     Dates: end: 20050101
  8. ADVAIR (FLUTICASONE PROPIONATE, SALMETEROL XINAFOATE) [Suspect]
     Indication: CHRONIC OBSTRUCTIVE PULMONARY DISEASE
     Dosage: INHALATION
     Dates: end: 20050101
  9. ADVAIR (FLUTICASONE PROPIONATE, SALMETEROL XINAFOATE) [Suspect]
     Indication: EMPHYSEMA
     Dosage: INHALATION
     Dates: end: 20050101
  10. DITROPAN XL [Suspect]
     Indication: ILL-DEFINED DISORDER
     Dosage: (5 MG)
  11. DONNATAL (ATROPINE SULFATE, HYOSCINE HYDROBROMIDE, HYOSCYAMINE SULFATE [Concomitant]
  12. RHINOHIST (CARBINOXAMINE MALEATE, PSEUDOEPHEDRINE HYDROCHLORIDE) [Concomitant]
  13. ATIVAN [Concomitant]
  14. CENTRUM (MINERALS NOS, VITAMINS NOS) [Concomitant]
  15. CALCIUM (CALCIUM) [Concomitant]
  16. XOPENEX [Concomitant]

REACTIONS (16)
  - BLADDER DISORDER [None]
  - BRONCHITIS ACUTE [None]
  - CHOKING [None]
  - CHRONIC OBSTRUCTIVE PULMONARY DISEASE [None]
  - DECREASED ACTIVITY [None]
  - DRUG EFFECT DECREASED [None]
  - DRUG INEFFECTIVE [None]
  - EMPHYSEMA [None]
  - FALL [None]
  - HIP FRACTURE [None]
  - INCONTINENCE [None]
  - MALAISE [None]
  - POST PROCEDURAL COMPLICATION [None]
  - RETCHING [None]
  - WEIGHT INCREASED [None]
  - WHEELCHAIR USER [None]
